FAERS Safety Report 8998713 (Version 1)
Quarter: 2013Q1

REPORT INFORMATION
  Report Type: Spontaneous
  Country: IT (occurrence: IT)
  Receive Date: 20130103
  Receipt Date: 20130103
  Transmission Date: 20140127
  Serious: Yes (Other)
  Sender: FDA-Public Use
  Company Number: IT-PFIZER INC-2012331951

PATIENT
  Age: 57 Year
  Sex: Female
  Weight: 53 kg

DRUGS (7)
  1. IRINOTECAN HCL [Suspect]
     Indication: COLON CANCER
     Dosage: 160.9 MG, 1X/DAY
     Route: 042
     Dates: start: 20121218, end: 20121219
  2. ERBITUX [Suspect]
     Indication: COLON CANCER
     Dosage: 596 MG, 1X/DAY
     Route: 042
     Dates: start: 20121218, end: 20121219
  3. FLUOROURACIL [Suspect]
     Indication: COLON CANCER
     Dosage: 536.4 MG, 1X/DAY
     Route: 042
     Dates: start: 20121218, end: 20121219
  4. RANIDIL [Concomitant]
     Dosage: UNK
     Dates: start: 20121218, end: 20121219
  5. CALCIUM LEVOFOLINATE [Concomitant]
     Dosage: UNK
     Dates: start: 20121218, end: 20121219
  6. SOLDESAM [Concomitant]
     Dosage: UNK
     Dates: start: 20121218, end: 20121219
  7. ONDANSETRON [Concomitant]
     Dosage: UNK
     Dates: start: 20121218, end: 20121219

REACTIONS (2)
  - Pain in extremity [Not Recovered/Not Resolved]
  - Oedema peripheral [Not Recovered/Not Resolved]
